FAERS Safety Report 9791547 (Version 1)
Quarter: 2014Q1

REPORT INFORMATION
  Report Type: Report from Study
  Country: TR (occurrence: TR)
  Receive Date: 20140101
  Receipt Date: 20140101
  Transmission Date: 20141002
  Serious: Yes (Hospitalization)
  Sender: FDA-Public Use
  Company Number: TR-US-EMD SERONO, INC.-7259696

PATIENT
  Age: 21 Year
  Sex: Female
  Weight: 50 kg

DRUGS (3)
  1. REBIF [Suspect]
     Indication: RELAPSING-REMITTING MULTIPLE SCLEROSIS
     Route: 058
     Dates: start: 20131126, end: 20131130
  2. CIPRALEX /01588501/ [Suspect]
     Indication: SLEEP DISORDER
     Route: 048
     Dates: start: 20131126, end: 20131130
  3. BRUFEN /00109201/ [Suspect]
     Indication: ARTHRALGIA
     Route: 048
     Dates: start: 20131126, end: 20131130

REACTIONS (5)
  - Nausea [Recovering/Resolving]
  - Vomiting [Recovering/Resolving]
  - Headache [Recovering/Resolving]
  - Multiple sclerosis relapse [Recovering/Resolving]
  - Toxicity to various agents [Unknown]
